FAERS Safety Report 8619135-2 (Version None)
Quarter: 2012Q3

REPORT INFORMATION
  Report Type: 
  Country: None (occurrence: None)
  Receive Date: 20120824
  Receipt Date: 20120823
  Transmission Date: 20120928
  Serious: Yes (Hospitalization, Other)
  Sender: FDA-Public Use
  Company Number: PHHY2012AU064141

PATIENT
  Sex: Female

DRUGS (2)
  1. CLOZARIL [Suspect]
     Dosage: 400 MG, DAILY
     Route: 048
     Dates: start: 20050210, end: 20120719
  2. QUETIAPINE [Concomitant]

REACTIONS (2)
  - ELECTROCARDIOGRAM QT PROLONGED [None]
  - PSYCHOTIC DISORDER [None]
